FAERS Safety Report 6731753-5 (Version None)
Quarter: 2010Q2

REPORT INFORMATION
  Report Type: 
  Country: None (occurrence: None)
  Receive Date: 20100519
  Receipt Date: 20100510
  Transmission Date: 20101027
  Serious: Yes (Other)
  Sender: FDA-Public Use
  Company Number: JP-PFIZER INC-2010042189

PATIENT
  Age: 45 Year
  Sex: Female

DRUGS (3)
  1. CABERGOLINE [Suspect]
     Indication: HYPOPHYSITIS
     Dosage: 0.5 TO 1.0 MG PER DAY
     Route: 048
  2. CABERGOLINE [Suspect]
     Indication: HYPERPROLACTINAEMIA
  3. CABERGOLINE [Suspect]
     Indication: GALACTORRHOEA

REACTIONS (1)
  - RETROPERITONEAL FIBROSIS [None]
